FAERS Safety Report 13123363 (Version 1)
Quarter: 2017Q1

REPORT INFORMATION
  Report Type: Spontaneous
  Country: US (occurrence: US)
  Receive Date: 20170117
  Receipt Date: 20170117
  Transmission Date: 20170428
  Serious: No
  Sender: FDA-Public Use
  Company Number: US-ALLERGAN-1661557US

PATIENT
  Age: 66 Year
  Sex: Female
  Weight: 58.5 kg

DRUGS (3)
  1. DALVANCE [Suspect]
     Active Substance: DALBAVANCIN
     Dosage: UNK
     Route: 042
     Dates: start: 20160603, end: 20160610
  2. DALVANCE [Suspect]
     Active Substance: DALBAVANCIN
     Dosage: 500 MG, SINGLE
     Route: 042
     Dates: start: 20160520, end: 20160610
  3. DALVANCE [Suspect]
     Active Substance: DALBAVANCIN
     Indication: OSTEOMYELITIS
     Dosage: 1000 MG, SINGLE
     Route: 042
     Dates: start: 20160513, end: 20160610

REACTIONS (3)
  - Pruritus [Recovered/Resolved]
  - Rash [Recovered/Resolved]
  - Off label use [Unknown]

NARRATIVE: CASE EVENT DATE: 20160527
